FAERS Safety Report 6286836-3 (Version None)
Quarter: 2009Q3

REPORT INFORMATION
  Report Type: 
  Country: None (occurrence: None)
  Receive Date: 20090727
  Receipt Date: 20090727
  Transmission Date: 20100115
  Serious: No
  Sender: FDA-Public Use
  Company Number: None

PATIENT
  Age: 55 Year
  Sex: Male
  Weight: 77.1115 kg

DRUGS (1)
  1. LOVASTATIN [Suspect]
     Indication: BLOOD CHOLESTEROL DECREASED
     Dosage: 1 1 AT BET T MOUTH
     Route: 048
     Dates: start: 20090616, end: 20090619

REACTIONS (3)
  - BLOOD PRESSURE INCREASED [None]
  - HEAD TITUBATION [None]
  - MUSCULAR WEAKNESS [None]
